FAERS Safety Report 14678803 (Version 1)
Quarter: 2018Q1

REPORT INFORMATION
  Report Type: Spontaneous
  Country: FR (occurrence: FR)
  Receive Date: 20180326
  Receipt Date: 20180326
  Transmission Date: 20180509
  Serious: Yes (Other)
  Sender: FDA-Public Use
  Company Number: FR-MERCK KGAA-2044504

PATIENT
  Age: 42 Year
  Sex: Male

DRUGS (2)
  1. NOVOTHYROX [Suspect]
     Active Substance: LEVOTHYROXINE SODIUM
     Dates: start: 20170904
  2. NOVOTHYROX [Suspect]
     Active Substance: LEVOTHYROXINE SODIUM
     Indication: THYROIDECTOMY
     Dates: start: 201706

REACTIONS (19)
  - Non-consummation [None]
  - Palpitations [None]
  - Migraine [None]
  - Dyspnoea [None]
  - Dizziness [None]
  - Decreased interest [None]
  - Ill-defined disorder [None]
  - Insomnia [None]
  - Asthenia [None]
  - Cough [None]
  - Libido decreased [None]
  - Fatigue [None]
  - Diarrhoea [None]
  - Headache [None]
  - Social avoidant behaviour [None]
  - Myalgia [None]
  - Loss of personal independence in daily activities [None]
  - Fatigue [None]
  - Apathy [None]

NARRATIVE: CASE EVENT DATE: 201706
